FAERS Safety Report 11759818 (Version 1)
Quarter: 2015Q4

REPORT INFORMATION
  Report Type: Spontaneous
  Country: US (occurrence: None)
  Receive Date: 20151119
  Receipt Date: 20151119
  Transmission Date: 20160304
  Serious: No
  Sender: FDA-Public Use
  Company Number: None

PATIENT
  Age: 51 Year
  Sex: Female
  Weight: 79.38 kg

DRUGS (7)
  1. RISPERDAL [Suspect]
     Active Substance: RISPERIDONE
     Indication: DEPRESSION
     Route: 048
     Dates: start: 20151031, end: 20151103
  2. ABILIFY [Concomitant]
     Active Substance: ARIPIPRAZOLE
  3. DIGOXIN. [Concomitant]
     Active Substance: DIGOXIN
  4. NORTIPTYLLINE [Concomitant]
  5. EXCEDRIN [Concomitant]
     Active Substance: ACETAMINOPHEN\ASPIRIN\CAFFEINE
  6. TRAZODONE [Concomitant]
     Active Substance: TRAZODONE HYDROCHLORIDE
  7. LYRICA [Concomitant]
     Active Substance: PREGABALIN

REACTIONS (3)
  - Thinking abnormal [None]
  - Gait disturbance [None]
  - Feeling drunk [None]

NARRATIVE: CASE EVENT DATE: 20151101
